FAERS Safety Report 18826556 (Version 1)
Quarter: 2021Q1

REPORT INFORMATION
  Report Type: Spontaneous
  Country: US (occurrence: US)
  Receive Date: 20210201
  Receipt Date: 20210201
  Transmission Date: 20210419
  Serious: No
  Sender: FDA-Public Use
  Company Number: US-ABBVIE-20K-163-3409029-00

PATIENT
  Age: 42 Year
  Sex: Male

DRUGS (1)
  1. HUMIRA [Suspect]
     Active Substance: ADALIMUMAB
     Indication: ANKYLOSING SPONDYLITIS
     Route: 058
     Dates: start: 201610

REACTIONS (9)
  - Pruritus [Unknown]
  - Restlessness [Unknown]
  - Lip swelling [Unknown]
  - Hordeolum [Unknown]
  - Skin papilloma [Unknown]
  - Poor quality sleep [Unknown]
  - Allergy to animal [Unknown]
  - Back pain [Unknown]
  - Urticaria [Unknown]

NARRATIVE: CASE EVENT DATE: 2018
